FAERS Safety Report 7560169-7 (Version None)
Quarter: 2011Q2

REPORT INFORMATION
  Report Type: 
  Country: None (occurrence: None)
  Receive Date: 20110621
  Receipt Date: 20110610
  Transmission Date: 20111010
  Serious: Yes (Hospitalization, Disabling)
  Sender: FDA-Public Use
  Company Number: A0922696A

PATIENT
  Sex: Male
  Weight: 93.1 kg

DRUGS (7)
  1. LISINOPRIL [Concomitant]
  2. PREDNISONE [Concomitant]
  3. STEROIDS [Concomitant]
  4. STATINS [Concomitant]
  5. CELLCEPT [Concomitant]
  6. PROGRAF [Concomitant]
  7. AVANDIA [Suspect]
     Indication: DIABETES MELLITUS
     Route: 048
     Dates: start: 19990701, end: 20090101

REACTIONS (15)
  - CEREBROVASCULAR ACCIDENT [None]
  - FABRY'S DISEASE [None]
  - CORTICAL LAMINAR NECROSIS [None]
  - CALCINOSIS [None]
  - DISABILITY [None]
  - MENTAL STATUS CHANGES [None]
  - APHASIA [None]
  - NUCLEAR MAGNETIC RESONANCE IMAGING BRAIN ABNORMAL [None]
  - SINUS DISORDER [None]
  - MASTOIDITIS [None]
  - IMPAIRED WORK ABILITY [None]
  - NAUSEA [None]
  - CONFUSIONAL STATE [None]
  - VOMITING [None]
  - COMPUTERISED TOMOGRAM ABNORMAL [None]
